FAERS Safety Report 25866270 (Version 5)
Quarter: 2025Q4

REPORT INFORMATION
  Report Type: Spontaneous
  Country: US (occurrence: US)
  Receive Date: 20250930
  Receipt Date: 20251124
  Transmission Date: 20260118
  Serious: Yes (Death, Hospitalization, Other)
  Sender: MERCK SHARP & DOHME LLC
  Company Number: US-009507513-2332854

PATIENT
  Sex: Male
  Weight: 98.43 kg

DRUGS (1)
  1. KEYTRUDA [Suspect]
     Active Substance: PEMBROLIZUMAB
     Indication: Renal cell carcinoma
     Route: 042
     Dates: start: 20241105

REACTIONS (29)
  - Cardiogenic shock [Fatal]
  - Myocarditis [Fatal]
  - Myasthenia gravis [Unknown]
  - Malignant neoplasm progression [Fatal]
  - Acute respiratory failure [Unknown]
  - COVID-19 [Unknown]
  - Atelectasis [Unknown]
  - Pleural effusion [Unknown]
  - Pulmonary oedema [Unknown]
  - Acute kidney injury [Unknown]
  - Pneumonia bacterial [Unknown]
  - Hepatitis A [Unknown]
  - Bundle branch block left [Unknown]
  - Myositis [Unknown]
  - Encephalopathy [Unknown]
  - Acute myocardial infarction [Unknown]
  - Hypertransaminasaemia [Unknown]
  - Sepsis [Unknown]
  - Systemic inflammatory response syndrome [Unknown]
  - Pneumonitis [Unknown]
  - Hyperkalaemia [Recovered/Resolved]
  - Periorbital swelling [Unknown]
  - Periorbital swelling [Unknown]
  - Iron deficiency anaemia [Unknown]
  - Renal disorder [Unknown]
  - Neuropathy peripheral [Unknown]
  - Weight decreased [Unknown]
  - Eye discharge [Unknown]
  - Eye allergy [Unknown]

NARRATIVE: CASE EVENT DATE: 20240101
